FAERS Safety Report 24989586 (Version 1)
Quarter: 2025Q1

REPORT INFORMATION
  Report Type: Spontaneous
  Country: US (occurrence: US)
  Receive Date: 20250220
  Receipt Date: 20250220
  Transmission Date: 20250408
  Serious: Yes (Hospitalization)
  Sender: GRIFOLS
  Company Number: US-IGSA-BIG0033103

PATIENT
  Sex: Female
  Weight: 77.098 kg

DRUGS (15)
  1. PROLASTIN-C LIQUID [Suspect]
     Active Substance: .ALPHA.1-PROTEINASE INHIBITOR HUMAN
     Indication: Alpha-1 antitrypsin deficiency
     Dosage: 4332 MILLIGRAM, Q.WK.
     Route: 042
  2. EPINEPHRINE [Concomitant]
     Active Substance: EPINEPHRINE
  3. LIDOCAINE 4% MENTHOL 4% [Concomitant]
     Active Substance: LIDOCAINE\MENTHOL
  4. DEXTROSE\SODIUM CHLORIDE [Concomitant]
     Active Substance: DEXTROSE\SODIUM CHLORIDE
  5. GLIMEPIRIDE [Concomitant]
     Active Substance: GLIMEPIRIDE
  6. ELIQUIS [Concomitant]
     Active Substance: APIXABAN
  7. OMEPRAZOLE [Concomitant]
     Active Substance: OMEPRAZOLE
  8. ATORVASTATIN CALCIUM ANHYDROUS [Concomitant]
     Active Substance: ATORVASTATIN CALCIUM ANHYDROUS
  9. ACID REDUCER [NIZATIDINE] [Concomitant]
  10. CYPROHEPTADINE HYDROCHLORIDE [Concomitant]
     Active Substance: CYPROHEPTADINE HYDROCHLORIDE
  11. GABAPENTIN [Concomitant]
     Active Substance: GABAPENTIN
  12. ROPINIROLE [Concomitant]
     Active Substance: ROPINIROLE
  13. MONTELUKAST SODIUM [Concomitant]
     Active Substance: MONTELUKAST SODIUM
  14. RAYALDEE [Concomitant]
     Active Substance: CALCIFEDIOL
  15. TROSPIUM CHLORIDE [Concomitant]
     Active Substance: TROSPIUM CHLORIDE

REACTIONS (1)
  - Pancreatitis [Unknown]
